FAERS Safety Report 4916955-2 (Version None)
Quarter: 2006Q1

REPORT INFORMATION
  Report Type: 
  Country: None (occurrence: None)
  Receive Date: 20060214
  Receipt Date: 20060125
  Transmission Date: 20060701
  Serious: Yes (Hospitalization)
  Sender: FDA-Public Use
  Company Number: JP200601002972

PATIENT
  Age: 75 Year
  Sex: Female

DRUGS (4)
  1. EVISTA [Suspect]
     Dosage: ORAL
     Route: 048
  2. ALFACALCIDOL (ALFACALCIDOL) [Concomitant]
  3. GLAKAY (MENATETRENONE) [Concomitant]
  4. BIOFERMIN (BACILLUS SUBTILIS, LACTOBACILLUS ACIDOPHILUS, STREPTOCOCCUS [Concomitant]

REACTIONS (6)
  - ASTHENIA [None]
  - CEREBRAL INFARCTION [None]
  - CONVULSION [None]
  - DYSARTHRIA [None]
  - FALL [None]
  - MONOPARESIS [None]
